FAERS Safety Report 5537444-0 (Version None)
Quarter: 2007Q4

REPORT INFORMATION
  Report Type: 
  Country: None (occurrence: None)
  Receive Date: 20071207
  Receipt Date: 20071113
  Transmission Date: 20080405
  Serious: Yes (Hospitalization)
  Sender: FDA-Public Use
  Company Number: TR-ELI_LILLY_AND_COMPANY-TR200712000632

PATIENT
  Sex: Female
  Weight: 88 kg

DRUGS (5)
  1. HUMALOG [Suspect]
     Dosage: 4 U, EACH MORNING
     Route: 058
     Dates: start: 20040101
  2. HUMALOG [Suspect]
     Dosage: 4 U, NOON
     Route: 058
     Dates: start: 20040101
  3. HUMALOG [Suspect]
     Dosage: 4 U, EACH EVENING
     Route: 058
     Dates: start: 20040101
  4. HUMULIN N [Suspect]
     Dosage: 8 U, EACH EVENING
     Route: 058
     Dates: start: 20040101
  5. OTHER ANTIHYPERTENSIVES [Concomitant]
     Indication: HYPERTENSION
     Dosage: 1 D/F, DAILY (1/D)
     Route: 048
     Dates: start: 19950101

REACTIONS (1)
  - RENAL FAILURE [None]
